FAERS Safety Report 5691979-9 (Version None)
Quarter: 2008Q1

REPORT INFORMATION
  Report Type: 
  Country: None (occurrence: None)
  Receive Date: 20080321
  Receipt Date: 20080321
  Transmission Date: 20080703
  Serious: Yes (Other)
  Sender: FDA-Public Use
  Company Number: 2008AP000715

PATIENT
  Age: 77 Year
  Sex: Male

DRUGS (4)
  1. AMLODIPINE BESYLATE [Suspect]
     Indication: HYPERTENSION
     Dosage: 10 MG; PO
     Route: 048
     Dates: start: 20070913, end: 20080201
  2. DOXAZOSIN (DOXAZOSIN) [Concomitant]
  3. RAMIPRIL [Concomitant]
  4. SIMVASTATIN [Concomitant]

REACTIONS (3)
  - LOCALISED OEDEMA [None]
  - OEDEMA PERIPHERAL [None]
  - SCROTAL OEDEMA [None]
